FAERS Safety Report 4624172-9 (Version None)
Quarter: 2005Q1

REPORT INFORMATION
  Report Type: 
  Country: None (occurrence: None)
  Receive Date: 20050331
  Receipt Date: 20050318
  Transmission Date: 20050727
  Serious: Yes (Hospitalization)
  Sender: FDA-Public Use
  Company Number: FR-GLAXOSMITHKLINE-B0375413A

PATIENT
  Age: 41 Year
  Sex: Female
  Weight: 80 kg

DRUGS (5)
  1. DEROXAT [Suspect]
     Indication: DEPRESSION
     Route: 048
     Dates: start: 19960101, end: 20050207
  2. IMOVANE [Suspect]
     Route: 048
     Dates: start: 19960101, end: 20050207
  3. XANAX [Suspect]
     Route: 048
     Dates: start: 19960101
  4. LEXOMIL [Suspect]
     Route: 048
     Dates: start: 19960101, end: 20050207
  5. PROPOFAN [Suspect]
     Route: 048
     Dates: start: 19960101, end: 20050207

REACTIONS (7)
  - ALANINE AMINOTRANSFERASE INCREASED [None]
  - ASPARTATE AMINOTRANSFERASE INCREASED [None]
  - BLOOD BILIRUBIN INCREASED [None]
  - EPENDYMOMA [None]
  - FACIAL PALSY [None]
  - GAMMA-GLUTAMYLTRANSFERASE INCREASED [None]
  - JAUNDICE [None]
